FAERS Safety Report 5147321-5 (Version None)
Quarter: 2006Q4

REPORT INFORMATION
  Report Type: 
  Country: None (occurrence: None)
  Receive Date: 20061103
  Receipt Date: 20061019
  Transmission Date: 20070319
  Serious: Yes (Hospitalization)
  Sender: FDA-Public Use
  Company Number: US-2006-028801

PATIENT
  Age: 52 Year
  Sex: Female

DRUGS (17)
  1. BETASERON [Suspect]
     Indication: SECONDARY PROGRESSIVE MULTIPLE SCLEROSIS
     Dosage: 8 MIU, EVERY 2D, SUBCUTANEOUS
     Route: 058
     Dates: start: 20060512
  2. ATENOLOL [Concomitant]
  3. LOTREL (BENAZEPRIL HYDROCHLORIDE, AMLODIPINE) [Concomitant]
  4. ACIPHEX [Concomitant]
  5. BACLOFEN [Concomitant]
  6. DIAZEPAM [Concomitant]
  7. DETROL [Concomitant]
  8. HYDROCODONE W/ACETAMINOPHEN (HYDROCODONE BITARTRATE) [Concomitant]
  9. OXYCODONE HCL [Concomitant]
  10. PROVIGIL (MODAFINAL) [Concomitant]
  11. TIZANIDINE HCL [Concomitant]
  12. WELLBUTRIN [Concomitant]
  13. VITAMIN B-12 [Concomitant]
  14. MULTIVITAMINS (RETINOL, PANTHENOL) [Concomitant]
  15. ASPIRIN [Concomitant]
  16. PREDNISONE TAB [Concomitant]
  17. CORTICOSTEROIDS [Concomitant]

REACTIONS (2)
  - ABASIA [None]
  - HYPOAESTHESIA [None]
